FAERS Safety Report 9187208 (Version 1)
Quarter: 2013Q1

REPORT INFORMATION
  Report Type: Spontaneous
  Country: US (occurrence: US)
  Receive Date: 20130325
  Receipt Date: 20130325
  Transmission Date: 20140127
  Serious: Yes (Hospitalization)
  Sender: FDA-Public Use
  Company Number: US-BAYER-2013-035422

PATIENT
  Age: 28 Year
  Sex: Female
  Weight: 99.77 kg

DRUGS (3)
  1. YASMIN [Suspect]
  2. POTASSIUM [Concomitant]
     Dosage: 10 MEQ, QD
  3. TOPROL [Concomitant]
     Dosage: 25 MG, UNK

REACTIONS (2)
  - Pulmonary embolism [Recovering/Resolving]
  - Deep vein thrombosis [None]
